FAERS Safety Report 14855000 (Version 3)
Quarter: 2022Q2

REPORT INFORMATION
  Report Type: Spontaneous
  Country: US (occurrence: None)
  Receive Date: 20180507
  Receipt Date: 20220426
  Transmission Date: 20220720
  Serious: No
  Sender: FDA-Public Use
  Company Number: US-ROCHE-1921739

PATIENT
  Sex: Female

DRUGS (3)
  1. ESBRIET [Suspect]
     Active Substance: PIRFENIDONE
     Indication: Pulmonary arterial hypertension
     Route: 048
     Dates: start: 20160321
  2. ESBRIET [Suspect]
     Active Substance: PIRFENIDONE
     Indication: Idiopathic pulmonary fibrosis
     Dosage: 3 CAPS TID
     Route: 048
  3. ESBRIET [Suspect]
     Active Substance: PIRFENIDONE
     Dosage: 2 CAPSLUES (534 MG) TID
     Route: 048
     Dates: start: 20170501

REACTIONS (4)
  - Abdominal pain upper [Unknown]
  - Diarrhoea [Unknown]
  - Nausea [Unknown]
  - Vomiting [Unknown]
